FAERS Safety Report 6253620-6 (Version None)
Quarter: 2009Q3

REPORT INFORMATION
  Report Type: 
  Country: None (occurrence: None)
  Receive Date: 20090701
  Receipt Date: 20090619
  Transmission Date: 20100115
  Serious: Yes (Hospitalization)
  Sender: FDA-Public Use
  Company Number: US-PFIZER INC-2009230150

PATIENT
  Sex: Female
  Weight: 54.431 kg

DRUGS (3)
  1. REVATIO [Suspect]
     Indication: PULMONARY HYPERTENSION
     Dosage: 20 MG, 3X/DAY
     Dates: start: 20090101
  2. ARIXTRA [Concomitant]
     Dosage: UNK
  3. MICARDIS [Concomitant]
     Dosage: UNK

REACTIONS (4)
  - EYE PAIN [None]
  - PAIN [None]
  - SURGERY [None]
  - WEIGHT DECREASED [None]
